FAERS Safety Report 8078911-8 (Version None)
Quarter: 2012Q1

REPORT INFORMATION
  Report Type: 
  Country: None (occurrence: None)
  Receive Date: 20120124
  Receipt Date: 20120109
  Transmission Date: 20120608
  Serious: Yes (Death, Hospitalization)
  Sender: FDA-Public Use
  Company Number: JPI-P-004826

PATIENT
  Age: 26 Year
  Sex: Female

DRUGS (6)
  1. PSYCHODYSLEPTICS (HALLUCINOGENS) [Suspect]
     Indication: PRODUCT USED FOR UNKNOWN INDICATION
     Dates: end: 20080824
  2. ZOLPIDEM TARTRATE [Concomitant]
  3. XYREM [Suspect]
     Indication: DYSSOMNIA
     Dosage: 4.5 GM (2.25 GM, 2 IN 1 D), ORAL
     Route: 048
     Dates: start: 20080516
  4. XYREM [Suspect]
     Indication: FIBROMYALGIA
     Dosage: 4.5 GM (2.25 GM, 2 IN 1 D), ORAL
     Route: 048
     Dates: start: 20080516
  5. MULTIPLE SLEEP MEDICATIONS [Suspect]
     Indication: PRODUCT USED FOR UNKNOWN INDICATION
     Dates: end: 20080824
  6. NARCOTICS [Suspect]
     Indication: PRODUCT USED FOR UNKNOWN INDICATION
     Dates: end: 20080824

REACTIONS (7)
  - HANGOVER [None]
  - MULTIPLE DRUG OVERDOSE [None]
  - SEDATION [None]
  - ACCIDENTAL POISONING [None]
  - FEELING DRUNK [None]
  - SELF-MEDICATION [None]
  - PNEUMONIA [None]
